FAERS Safety Report 15537681 (Version 1)
Quarter: 2018Q4

REPORT INFORMATION
  Report Type: Spontaneous
  Country: RU (occurrence: RU)
  Receive Date: 20181022
  Receipt Date: 20181022
  Transmission Date: 20190205
  Serious: Yes (Other)
  Sender: FDA-Public Use
  Company Number: RU-PFIZER INC-2018425493

PATIENT
  Age: 35 Year
  Sex: Female

DRUGS (2)
  1. LYRICA [Suspect]
     Active Substance: PREGABALIN
     Indication: DRUG WITHDRAWAL SYNDROME
     Dosage: 150 MG, 2X/DAY
  2. HEROIN [Interacting]
     Active Substance: DIAMORPHINE
     Dosage: UNK

REACTIONS (3)
  - Ileus paralytic [Unknown]
  - Drug interaction [Unknown]
  - Product use in unapproved indication [Unknown]
